FAERS Safety Report 14094837 (Version 1)
Quarter: 2017Q4

REPORT INFORMATION
  Report Type: Spontaneous
  Country: IT (occurrence: IT)
  Receive Date: 20171016
  Receipt Date: 20171016
  Transmission Date: 20180321
  Serious: Yes (Other)
  Sender: FDA-Public Use
  Company Number: IT-SA-2017SA198770

PATIENT
  Sex: Female

DRUGS (1)
  1. RIFADIN [Suspect]
     Active Substance: RIFAMPIN
     Route: 065

REACTIONS (2)
  - Generalised oedema [Not Recovered/Not Resolved]
  - Urticaria [Not Recovered/Not Resolved]
